FAERS Safety Report 14208256 (Version 1)
Quarter: 2017Q4

REPORT INFORMATION
  Report Type: Spontaneous
  Country: US (occurrence: US)
  Receive Date: 20171121
  Receipt Date: 20171121
  Transmission Date: 20180321
  Serious: Yes (Other)
  Sender: FDA-Public Use
  Company Number: PHEH2017US037337

PATIENT
  Sex: Male

DRUGS (1)
  1. HYCAMTIN [Suspect]
     Active Substance: TOPOTECAN HYDROCHLORIDE
     Indication: NEUROENDOCRINE TUMOUR
     Dosage: 4 DF, ONCE A DAY FOR 5 DAYS EVERY 21 DAYS
     Route: 048
     Dates: start: 20170901, end: 20171115

REACTIONS (2)
  - Neuroendocrine tumour [Unknown]
  - Malignant neoplasm progression [Unknown]
